FAERS Safety Report 24722785 (Version 1)
Quarter: 2024Q4

REPORT INFORMATION
  Report Type: Spontaneous
  Country: US (occurrence: US)
  Receive Date: 20241211
  Receipt Date: 20241211
  Transmission Date: 20250114
  Serious: No
  Sender: ABBVIE
  Company Number: US-ABBVIE-6035565

PATIENT
  Age: 68 Year
  Sex: Male

DRUGS (5)
  1. VRAYLAR [Suspect]
     Active Substance: CARIPRAZINE
     Indication: Product used for unknown indication
     Route: 048
  2. OFEV [Suspect]
     Active Substance: NINTEDANIB
     Indication: Idiopathic pulmonary fibrosis
     Dosage: 300.0 MILLIGRAM(S) (150 MILLIGRAM(S), 1 IN 12 HOUR)
     Route: 048
     Dates: start: 20240604
  3. OFEV [Suspect]
     Active Substance: NINTEDANIB
     Indication: Idiopathic pulmonary fibrosis
     Dosage: 300.0 MILLIGRAM(S) (150 MILLIGRAM(S), 1 IN 12 HOUR)
     Route: 048
     Dates: start: 20240604
  4. OFEV [Suspect]
     Active Substance: NINTEDANIB
     Indication: Idiopathic pulmonary fibrosis
     Dosage: 300.0 MILLIGRAM(S) (150 MILLIGRAM(S), 1 IN 12 HOUR)
     Route: 048
     Dates: start: 20240604
  5. OFEV [Suspect]
     Active Substance: NINTEDANIB
     Indication: Idiopathic pulmonary fibrosis
     Dosage: 300.0 MILLIGRAM(S) (150 MILLIGRAM(S), 1 IN 12 HOUR)
     Route: 048
     Dates: start: 20240604

REACTIONS (8)
  - Blood pressure increased [Recovering/Resolving]
  - Insomnia [Recovered/Resolved]
  - Dyspnoea [Not Recovered/Not Resolved]
  - Constipation [Recovering/Resolving]
  - Nausea [Unknown]
  - Vomiting [Unknown]
  - Dry mouth [Unknown]
  - Colitis [Unknown]

NARRATIVE: CASE EVENT DATE: 20240601
